FAERS Safety Report 15453583 (Version 5)
Quarter: 2019Q1

REPORT INFORMATION
  Report Type: Report from Study
  Country: US (occurrence: US)
  Receive Date: 20181001
  Receipt Date: 20190102
  Transmission Date: 20190417
  Serious: Yes (Death, Hospitalization)
  Sender: FDA-Public Use
  Company Number: US-ACTELION-A-NJ2017-156739

PATIENT
  Age: 71 Year
  Sex: Female
  Weight: 64.4 kg

DRUGS (7)
  1. OPSUMIT [Suspect]
     Active Substance: MACITENTAN
     Indication: PULMONARY ARTERIAL HYPERTENSION
     Dosage: 10 MG, QD
     Route: 048
     Dates: start: 20140924, end: 20181101
  2. UPTRAVI [Suspect]
     Active Substance: SELEXIPAG
     Indication: PULMONARY ARTERIAL HYPERTENSION
     Dosage: 400 MCG, BID
     Route: 048
  3. ADEMPAS [Concomitant]
     Active Substance: RIOCIGUAT
     Dosage: 1.5 MG, TID
  4. ADEMPAS [Concomitant]
     Active Substance: RIOCIGUAT
     Dosage: 0.5 MG, TID
  5. WARFARIN [Concomitant]
     Active Substance: WARFARIN
  6. UPTRAVI [Suspect]
     Active Substance: SELEXIPAG
     Dosage: 1000 MCG, BID
     Route: 048
  7. UPTRAVI [Suspect]
     Active Substance: SELEXIPAG
     Dosage: 1200 MCG, UNK
     Route: 048

REACTIONS (20)
  - Swelling [Recovering/Resolving]
  - Renal failure [Fatal]
  - Renal disorder [Unknown]
  - Dizziness [Unknown]
  - Agitation [Unknown]
  - Visual impairment [Unknown]
  - Dehydration [Unknown]
  - Cardiac arrest [Fatal]
  - Skin ulcer [Unknown]
  - Diarrhoea [Recovering/Resolving]
  - Weight increased [Recovering/Resolving]
  - Oral discomfort [Unknown]
  - Hypotension [Unknown]
  - Acute kidney injury [Unknown]
  - Nausea [Recovering/Resolving]
  - Oxygen saturation decreased [Unknown]
  - Cellulitis [Unknown]
  - Irritability [Unknown]
  - Asthenia [Unknown]
  - Somnolence [Recovering/Resolving]

NARRATIVE: CASE EVENT DATE: 201710
